FAERS Safety Report 26184194 (Version 1)
Quarter: 2025Q4

REPORT INFORMATION
  Report Type: Spontaneous
  Country: EU (occurrence: EU)
  Receive Date: 20251222
  Receipt Date: 20251222
  Transmission Date: 20260117
  Serious: Yes (Hospitalization)
  Sender: BAUSCH AND LOMB
  Company Number: EU-JNJFOC-20251207161

PATIENT
  Age: 9 Decade
  Sex: Female
  Weight: 40 kg

DRUGS (8)
  1. DEXAMETHASONE [Suspect]
     Active Substance: DEXAMETHASONE
     Indication: Plasma cell myeloma
     Route: 065
     Dates: end: 20201203
  2. DEXAMETHASONE [Suspect]
     Active Substance: DEXAMETHASONE
     Route: 065
  3. DARZALEX [Suspect]
     Active Substance: DARATUMUMAB
     Indication: Plasma cell myeloma
     Dosage: LINE 1; LAST ADMINISTERED ON 19-NOV-2019
     Route: 042
     Dates: start: 20190808
  4. DARZALEX [Suspect]
     Active Substance: DARATUMUMAB
     Route: 042
     Dates: end: 20201203
  5. DARZALEX [Suspect]
     Active Substance: DARATUMUMAB
     Route: 065
  6. REVLIMID [Suspect]
     Active Substance: LENALIDOMIDE
     Indication: Plasma cell myeloma
     Dosage: LINE 1
     Route: 065
     Dates: start: 20190808, end: 20191119
  7. REVLIMID [Suspect]
     Active Substance: LENALIDOMIDE
     Route: 065
     Dates: end: 20201211
  8. REVLIMID [Suspect]
     Active Substance: LENALIDOMIDE
     Route: 065

REACTIONS (1)
  - General physical health deterioration [Unknown]

NARRATIVE: CASE EVENT DATE: 20201212
